FAERS Safety Report 10229857 (Version 2)
Quarter: 2014Q3

REPORT INFORMATION
  Report Type: Spontaneous
  Country: US (occurrence: None)
  Receive Date: 20140609
  Receipt Date: 20140707
  Transmission Date: 20150326
  Serious: Yes (Other)
  Sender: FDA-Public Use
  Company Number: 2014-US-006797

PATIENT
  Age: 68 Year
  Sex: Female
  Weight: 83.9 kg

DRUGS (2)
  1. NUVIGIL [Concomitant]
     Active Substance: ARMODAFINIL
  2. XYREM [Suspect]
     Active Substance: SODIUM OXYBATE
     Indication: NARCOLEPSY
     Route: 048
     Dates: start: 201402, end: 2014

REACTIONS (9)
  - Sleep apnoea syndrome [None]
  - Dysphonia [None]
  - Arthralgia [None]
  - Back pain [None]
  - Oedema peripheral [None]
  - Memory impairment [None]
  - Abdominal distension [None]
  - Weight increased [None]
  - Middle insomnia [None]
